FAERS Safety Report 20483853 (Version 2)
Quarter: 2022Q1

REPORT INFORMATION
  Report Type: Report from Study
  Country: US (occurrence: US)
  Receive Date: 20220217
  Receipt Date: 20220307
  Transmission Date: 20220423
  Serious: Yes (Other)
  Sender: FDA-Public Use
  Company Number: US-JAZZ-2021-US-026444

PATIENT
  Age: 30 Year
  Sex: Male

DRUGS (2)
  1. XYREM [Suspect]
     Active Substance: SODIUM OXYBATE
     Indication: Narcolepsy
     Dosage: UNKNOWN DOSE
     Route: 048
  2. RESTASIS [Concomitant]
     Active Substance: CYCLOSPORINE
     Dosage: 0000
     Dates: start: 20211104

REACTIONS (3)
  - Nephrolithiasis [Recovered/Resolved]
  - Keratomileusis [Unknown]
  - Dry eye [Unknown]

NARRATIVE: CASE EVENT DATE: 20210801
